FAERS Safety Report 8931733 (Version 1)
Quarter: 2012Q4

REPORT INFORMATION
  Report Type: 
  Country: IL (occurrence: IL)
  Receive Date: 20121128
  Receipt Date: 20121128
  Transmission Date: 20130627
  Serious: Yes (Other)
  Sender: FDA-Public Use
  Company Number: IL-ROXANE LABORATORIES, INC.-2012-EU-05505GD

PATIENT
  Age: 58 Year
  Sex: Male

DRUGS (8)
  1. OMEPRAZOLE [Suspect]
     Indication: PEPTIC ULCER
  2. OMEPRAZOLE [Suspect]
     Indication: HELICOBACTER INFECTION
  3. CARBAMAZEPINE [Suspect]
     Indication: GRAND MAL CONVULSION
  4. CLARITHROMYCIN [Suspect]
     Indication: PEPTIC ULCER
  5. CLARITHROMYCIN [Suspect]
     Indication: HELICOBACTER INFECTION
  6. PHENYTOIN [Concomitant]
     Indication: GRAND MAL CONVULSION
  7. AMOXICILLIN [Concomitant]
     Indication: PEPTIC ULCER
  8. AMOXICILLIN [Concomitant]
     Indication: HELICOBACTER INFECTION

REACTIONS (3)
  - Ataxia [Recovered/Resolved]
  - Vertigo [Recovered/Resolved]
  - Drug interaction [Recovered/Resolved]
